FAERS Safety Report 10543666 (Version 1)
Quarter: 2014Q4

REPORT INFORMATION
  Report Type: Spontaneous
  Country: US (occurrence: US)
  Receive Date: 20141027
  Receipt Date: 20141027
  Transmission Date: 20150529
  Serious: Yes (Other)
  Sender: FDA-Public Use
  Company Number: CHPA2014US014276

PATIENT
  Age: 67 Year
  Sex: Male

DRUGS (1)
  1. GAS-X [Suspect]
     Active Substance: DIMETHICONE
     Indication: ABDOMINAL DISTENSION
     Dosage: UNK, PRN
     Route: 048

REACTIONS (1)
  - Diabetes mellitus [Unknown]
